FAERS Safety Report 9813814 (Version 1)
Quarter: 2014Q1

REPORT INFORMATION
  Report Type: Spontaneous
  Country: US (occurrence: US)
  Receive Date: 20140113
  Receipt Date: 20140113
  Transmission Date: 20141002
  Serious: Yes (Hospitalization)
  Sender: FDA-Public Use
  Company Number: US-ASTRAZENECA-2014SE00636

PATIENT
  Age: 2 Month
  Sex: Male

DRUGS (4)
  1. SYNAGIS [Suspect]
     Route: 030
     Dates: start: 20131108
  2. SYNAGIS [Suspect]
     Route: 030
     Dates: start: 20131206
  3. POLY-VI-SOL [Concomitant]
  4. RANITIDINE [Concomitant]
     Indication: GASTROOESOPHAGEAL REFLUX DISEASE

REACTIONS (6)
  - Parainfluenzae virus infection [Recovered/Resolved]
  - Croup infectious [Recovered/Resolved]
  - Respiratory failure [Recovered/Resolved]
  - Apnoea [Recovered/Resolved]
  - Staphylococcus test positive [Recovered/Resolved]
  - Human rhinovirus test positive [Recovered/Resolved]
